FAERS Safety Report 4320615-9 (Version None)
Quarter: 2004Q1

REPORT INFORMATION
  Report Type: 
  Country: None (occurrence: None)
  Receive Date: 20040315
  Receipt Date: 20030606
  Transmission Date: 20041129
  Serious: Yes (Hospitalization, Other)
  Sender: FDA-Public Use
  Company Number: USA030331491

PATIENT
  Age: 62 Year
  Sex: Female
  Weight: 67 kg

DRUGS (9)
  1. GEMZAR [Suspect]
     Indication: OVARIAN CANCER
     Dosage: 800 MG/M2
     Dates: start: 20011109, end: 20020311
  2. EVISTA [Suspect]
  3. VITAMIN CAP [Concomitant]
  4. CALCIUM [Concomitant]
  5. CITRUCEL (METHYLCELLULOSE) [Concomitant]
  6. ASPIRIN [Concomitant]
  7. SENOKOT [Concomitant]
  8. VIOXX [Concomitant]
  9. ZOLOFT [Concomitant]

REACTIONS (2)
  - MALIGNANT NEOPLASM PROGRESSION [None]
  - PNEUMONITIS [None]
